FAERS Safety Report 10549397 (Version 1)
Quarter: 2014Q4

REPORT INFORMATION
  Report Type: Spontaneous
  Country: US (occurrence: US)
  Receive Date: 20141028
  Receipt Date: 20141028
  Transmission Date: 20150529
  Serious: No
  Sender: FDA-Public Use
  Company Number: US-SHIRE-US201406663

PATIENT
  Age: 72 Year
  Sex: Female

DRUGS (2)
  1. AGRYLIN [Suspect]
     Active Substance: ANAGRELIDE HYDROCHLORIDE
     Dosage: UNK, UNKNOWN(SPLITTING THE CAPSULES TAKING ONE THIRD AT A TIME)
     Route: 048
  2. AGRYLIN [Suspect]
     Active Substance: ANAGRELIDE HYDROCHLORIDE
     Indication: PRODUCT USED FOR UNKNOWN INDICATION
     Dosage: 1 MG (TWO 0.5MG CAPSULES), 1X/DAY:QD
     Route: 048
     Dates: start: 1994

REACTIONS (2)
  - Palpitations [Not Recovered/Not Resolved]
  - Wrong technique in drug usage process [Not Recovered/Not Resolved]
